FAERS Safety Report 6114303-6 (Version None)
Quarter: 2009Q1

REPORT INFORMATION
  Report Type: 
  Country: None (occurrence: None)
  Receive Date: 20090312
  Receipt Date: 20081211
  Transmission Date: 20090719
  Serious: No
  Sender: FDA-Public Use
  Company Number: US-ABBOTT-08P-163-0492402-00

PATIENT
  Sex: Male
  Weight: 65.83 kg

DRUGS (1)
  1. DEPAKOTE [Suspect]
     Indication: CONVULSION
     Route: 048
     Dates: start: 20070828, end: 20080721

REACTIONS (2)
  - CONVULSION [None]
  - VERTIGO [None]
